FAERS Safety Report 16571227 (Version 1)
Quarter: 2019Q3

REPORT INFORMATION
  Report Type: Spontaneous
  Country: CA (occurrence: CA)
  Receive Date: 20190712
  Receipt Date: 20190712
  Transmission Date: 20191004
  Serious: Yes (Life-Threatening, Hospitalization, Disabling)
  Sender: FDA-Public Use
  Company Number: None

PATIENT
  Age: 37 Year
  Sex: Female
  Weight: 72 kg

DRUGS (1)
  1. MIRENA [Suspect]
     Active Substance: LEVONORGESTREL
     Indication: HAEMORRHAGE
     Dosage: ?          OTHER FREQUENCY:LASTS FOR 5 YEARS;?
     Route: 067
     Dates: start: 20190227

REACTIONS (3)
  - Complication associated with device [None]
  - Generalised tonic-clonic seizure [None]
  - Respiratory arrest [None]

NARRATIVE: CASE EVENT DATE: 20190703
